FAERS Safety Report 6897609-2 (Version None)
Quarter: 2010Q3

REPORT INFORMATION
  Report Type: 
  Country: None (occurrence: None)
  Receive Date: 20100802
  Receipt Date: 20070703
  Transmission Date: 20110219
  Serious: No
  Sender: FDA-Public Use
  Company Number: US-PFIZER INC-2007055019

PATIENT

DRUGS (1)
  1. LYRICA [Suspect]

REACTIONS (2)
  - MUSCLE SPASMS [None]
  - POLLAKIURIA [None]
